FAERS Safety Report 17705343 (Version 3)
Quarter: 2020Q2

REPORT INFORMATION
  Report Type: Report from Study
  Country: US (occurrence: US)
  Receive Date: 20200424
  Receipt Date: 20200513
  Transmission Date: 20200714
  Serious: Yes (Hospitalization, Other)
  Sender: FDA-Public Use
  Company Number: US-BRISTOL-MYERS SQUIBB COMPANY-BMS-2020-027363

PATIENT
  Age: 59 Year
  Sex: Female

DRUGS (7)
  1. IMODIUM [Concomitant]
     Active Substance: LOPERAMIDE HYDROCHLORIDE
     Indication: DIARRHOEA
     Dosage: 2MG, Q4H, PRN
     Route: 048
     Dates: start: 20200114
  2. NIVOLUMAB [Suspect]
     Active Substance: NIVOLUMAB
     Indication: GLIOBLASTOMA
     Dosage: 240 MILLIGRAM, Q2WK
     Route: 042
     Dates: start: 20191206, end: 20200316
  3. FLUVOXAMINE [Concomitant]
     Active Substance: FLUVOXAMINE
     Indication: AFFECTIVE DISORDER
     Dosage: 50 MILLIGRAM, QD
     Route: 048
     Dates: start: 20191206
  4. KEPPRA [Concomitant]
     Active Substance: LEVETIRACETAM
     Indication: SEIZURE PROPHYLAXIS
     Dosage: 1000 MILLIGRAM, BID
     Route: 048
     Dates: start: 20191217
  5. ONDANSETRON [Concomitant]
     Active Substance: ONDANSETRON
     Indication: PROPHYLAXIS OF NAUSEA AND VOMITING
     Dosage: 8MG, Q8H, PRN
     Route: 048
     Dates: start: 20200226
  6. PANTOPRAZOLE [Concomitant]
     Active Substance: PANTOPRAZOLE
     Indication: GASTROINTESTINAL DISORDER
     Dosage: 40 MILLIGRAM, QD
     Route: 048
     Dates: start: 20200228
  7. BACTRIM DS [Concomitant]
     Active Substance: SULFAMETHOXAZOLE\TRIMETHOPRIM
     Indication: PNEUMONIA
     Dosage: 800RMG-160MG M, W, F
     Route: 048
     Dates: start: 20200228

REACTIONS (3)
  - Encephalopathy [Recovered/Resolved]
  - Pancreatitis [Not Recovered/Not Resolved]
  - Pyrexia [Recovered/Resolved]

NARRATIVE: CASE EVENT DATE: 20200327
